FAERS Safety Report 5814063-X (Version None)
Quarter: 2008Q3

REPORT INFORMATION
  Report Type: 
  Country: None (occurrence: None)
  Receive Date: 20080717
  Receipt Date: 20080625
  Transmission Date: 20090109
  Serious: No
  Sender: FDA-Public Use
  Company Number: US-BOEHRINGER INGELHEIM GMBH, GERMANY-2007-BP-17767BP

PATIENT
  Sex: Female

DRUGS (12)
  1. SPIRIVA [Suspect]
     Indication: CHRONIC OBSTRUCTIVE PULMONARY DISEASE
     Route: 055
     Dates: start: 20061001
  2. SPIRIVA [Suspect]
     Indication: EMPHYSEMA
  3. SPIRIVA [Suspect]
     Indication: DYSPNOEA
  4. COUMADIN [Concomitant]
  5. SYNTHROID [Concomitant]
  6. HYDROCHLOROTHIAZIDE [Concomitant]
  7. VALIUM [Concomitant]
  8. DIOVAN [Concomitant]
  9. PAMELOR [Concomitant]
  10. CITRACAL [Concomitant]
  11. ADVAIR DISKUS 100/50 [Concomitant]
     Indication: DYSPNOEA
  12. ALBUTEROL SULFATE [Concomitant]
     Indication: DYSPNOEA

REACTIONS (4)
  - APHONIA [None]
  - DYSPHONIA [None]
  - GLAUCOMA [None]
  - INTRAOCULAR PRESSURE INCREASED [None]
